FAERS Safety Report 7875533-6 (Version None)
Quarter: 2011Q4

REPORT INFORMATION
  Report Type: 
  Country: None (occurrence: None)
  Receive Date: 20111031
  Receipt Date: 20111026
  Transmission Date: 20120403
  Serious: Yes (Life-Threatening, Hospitalization)
  Sender: FDA-Public Use
  Company Number: PHEH2011US07215

PATIENT
  Sex: Female

DRUGS (38)
  1. FLEXERIL [Concomitant]
     Dosage: 20 MG, QD, NIGHTLY
     Route: 048
  2. METFORMIN HCL [Concomitant]
  3. MINERAL OIL EMULSION [Concomitant]
  4. ADVAIR DISKUS 100/50 [Concomitant]
     Dosage: 500/ 50 TWICE DAILY
  5. ASPIRIN [Concomitant]
     Dosage: 81 MG, QD
     Route: 048
  6. MUCINEX [Concomitant]
     Dosage: 1200 MG EVERY 12 HOURS
     Route: 048
  7. FLONASE [Concomitant]
     Dosage: 1 SPRAY DAILY
     Route: 045
  8. LUBIPROSTONE [Concomitant]
     Dosage: 24 UG, QD
     Route: 048
  9. BETA BLOCKING AGENTS [Concomitant]
  10. NASONEX [Concomitant]
  11. ESTRADIOL [Concomitant]
     Dosage: 1 MG, QD
     Route: 048
  12. MULTI-VITAMIN [Concomitant]
     Dosage: DAILY
     Route: 048
  13. CARAFATE [Concomitant]
     Dosage: TWICE DAILY
  14. MAGNESIUM [Concomitant]
  15. SPLENIUM [Concomitant]
  16. FLUOXETINE HCL [Concomitant]
  17. PEPCID [Concomitant]
     Dosage: 40 MG AT BEDTIME
  18. TOBI [Suspect]
     Dosage: 1 DF, BID
  19. PROTONIX [Concomitant]
     Dosage: 40 MG, BID
     Route: 048
  20. LISINOPRIL [Concomitant]
  21. LEVAQUIN [Concomitant]
     Dosage: 250 MG, QD
     Route: 048
  22. PHOSLO [Concomitant]
     Dosage: 667 MG, UNK
     Route: 048
  23. VICODIN [Concomitant]
  24. FLUCONAZOLE [Concomitant]
  25. PERCOCET [Concomitant]
  26. FAMOTIDINE [Concomitant]
  27. NEBIVOLOL HCL [Concomitant]
     Dosage: 10 MG, QD
     Route: 048
  28. PEPCID [Concomitant]
     Dosage: 40 MG, QD
     Route: 048
  29. PROMETHAZINE [Concomitant]
  30. VITAMIN D [Concomitant]
     Dosage: 200 UNITS
     Route: 048
  31. LIPITOR [Concomitant]
  32. BYSTOLIC [Concomitant]
  33. SPIRIVA [Concomitant]
     Dosage: 18 UG, QD
  34. WELLBUTRIN SR [Concomitant]
     Dosage: 150 MG, BID
     Route: 048
  35. ANUSOL HC [Concomitant]
     Dosage: 25 MG, QD
     Route: 054
  36. ALBUTEROL [Concomitant]
     Dosage: NEBULIZER 4 TIMES DAILY
  37. AMBIEN [Concomitant]
  38. PHENERGAN HCL [Concomitant]

REACTIONS (39)
  - OEDEMA PERIPHERAL [None]
  - CHEST DISCOMFORT [None]
  - PALPITATIONS [None]
  - HAEMATURIA [None]
  - VENTRICULAR EXTRASYSTOLES [None]
  - DYSPNOEA PAROXYSMAL NOCTURNAL [None]
  - PROLONGED EXPIRATION [None]
  - NIGHT SWEATS [None]
  - ECCHYMOSIS [None]
  - LEFT VENTRICULAR END-DIASTOLIC PRESSURE INCREASED [None]
  - RENAL NECROSIS [None]
  - FLUID OVERLOAD [None]
  - RHYTHM IDIOVENTRICULAR [None]
  - CONSTIPATION [None]
  - BLOOD CREATINE INCREASED [None]
  - ORTHOPNOEA [None]
  - WHEEZING [None]
  - PYREXIA [None]
  - DELIRIUM [None]
  - CONTUSION [None]
  - NAUSEA [None]
  - COUGH [None]
  - NASAL CONGESTION [None]
  - DIASTOLIC DYSFUNCTION [None]
  - GASTRITIS [None]
  - HAEMORRHAGE [None]
  - DEHYDRATION [None]
  - WEIGHT DECREASED [None]
  - ANAEMIA [None]
  - DIZZINESS [None]
  - RENAL FAILURE [None]
  - ABDOMINAL DISCOMFORT [None]
  - HAEMOPTYSIS [None]
  - INTERMITTENT CLAUDICATION [None]
  - ARTHRALGIA [None]
  - ISCHAEMIA [None]
  - AORTIC ANEURYSM [None]
  - DYSPNOEA [None]
  - ABDOMINAL PAIN [None]
